FAERS Safety Report 24237415 (Version 4)
Quarter: 2025Q4

REPORT INFORMATION
  Report Type: Spontaneous
  Country: US (occurrence: US)
  Receive Date: 20240822
  Receipt Date: 20251023
  Transmission Date: 20260118
  Serious: Yes (Other)
  Sender: NOVARTIS
  Company Number: US-002147023-NVSC2024US169440

PATIENT
  Age: 74 Year
  Sex: Female
  Weight: 54.9 kg

DRUGS (31)
  1. ENTRESTO [Suspect]
     Active Substance: SACUBITRIL\VALSARTAN
     Indication: Cardiac failure congestive
     Dosage: UNK (HIGHER DOSE)
     Route: 065
     Dates: end: 2024
  2. ENTRESTO [Suspect]
     Active Substance: SACUBITRIL\VALSARTAN
     Dosage: UNK (LOWER DOSE)
     Route: 065
     Dates: start: 2024, end: 2024
  3. ENTRESTO [Suspect]
     Active Substance: SACUBITRIL\VALSARTAN
     Dosage: UNK (24MG - 26MG)
     Route: 065
     Dates: start: 2024
  4. TREPROSTINIL SODIUM [Suspect]
     Active Substance: TREPROSTINIL SODIUM
     Indication: Pulmonary arterial hypertension
     Dosage: UNK
     Route: 055
     Dates: start: 20230807
  5. TREPROSTINIL SODIUM [Suspect]
     Active Substance: TREPROSTINIL SODIUM
     Dosage: 72 ?G (12 BREATHS)
     Route: 055
     Dates: start: 20230807, end: 20240812
  6. TREPROSTINIL SODIUM [Suspect]
     Active Substance: TREPROSTINIL SODIUM
     Dosage: 54 ?G, (WEANING OFF BY 3 BREATHS EVERY WEEK)
     Route: 055
     Dates: start: 20240812, end: 20240913
  7. TREPROSTINIL SODIUM [Suspect]
     Active Substance: TREPROSTINIL SODIUM
     Dosage: UNK, QID (36 ?G (6 BREATHS))
     Route: 055
     Dates: start: 20240913
  8. TREPROSTINIL SODIUM [Suspect]
     Active Substance: TREPROSTINIL SODIUM
     Dosage: 54 ?G, (9 BREATHS)
     Route: 055
  9. SPIRONOLACTONE [Concomitant]
     Active Substance: SPIRONOLACTONE
     Indication: Product used for unknown indication
     Dosage: 25 MG
     Route: 065
  10. CRESTOR [Concomitant]
     Active Substance: ROSUVASTATIN CALCIUM
     Indication: Product used for unknown indication
     Dosage: UNK
     Route: 065
  11. XANAX [Concomitant]
     Active Substance: ALPRAZOLAM
     Indication: Product used for unknown indication
     Dosage: .25 MG
     Route: 065
  12. PEPCID [Concomitant]
     Active Substance: FAMOTIDINE
     Indication: Product used for unknown indication
     Dosage: UNK
     Route: 065
  13. SYNTHROID [Concomitant]
     Active Substance: LEVOTHYROXINE SODIUM
     Indication: Product used for unknown indication
     Dosage: UNK
     Route: 065
  14. TOPROL XL [Concomitant]
     Active Substance: METOPROLOL SUCCINATE
     Indication: Product used for unknown indication
     Dosage: UNK
     Route: 065
  15. DESYREL [Concomitant]
     Active Substance: TRAZODONE HYDROCHLORIDE
     Indication: Product used for unknown indication
     Dosage: UNK
     Route: 065
  16. FLONASE [Concomitant]
     Active Substance: FLUTICASONE PROPIONATE
     Indication: Product used for unknown indication
     Dosage: UNK
     Route: 065
  17. AUGMENTIN [Concomitant]
     Active Substance: AMOXICILLIN\CLAVULANATE POTASSIUM
     Indication: Product used for unknown indication
     Dosage: UNK
     Route: 065
  18. JARDIANCE [Concomitant]
     Active Substance: EMPAGLIFLOZIN
     Indication: Product used for unknown indication
     Dosage: UNK
     Route: 065
  19. DEMADEX [Concomitant]
     Active Substance: TORSEMIDE
     Indication: Oedema
     Dosage: UNK
     Route: 065
     Dates: start: 2025
  20. DEMADEX [Concomitant]
     Active Substance: TORSEMIDE
     Dosage: UNK, TID
     Route: 065
  21. REVATIO [Concomitant]
     Active Substance: SILDENAFIL CITRATE
     Indication: Product used for unknown indication
     Dosage: UNK
     Route: 065
  22. TYLENOL [Concomitant]
     Active Substance: ACETAMINOPHEN
     Indication: Product used for unknown indication
     Dosage: UNK
     Route: 065
  23. ASPIRIN [Concomitant]
     Active Substance: ASPIRIN
     Indication: Product used for unknown indication
     Dosage: UNK
     Route: 065
  24. MELATONIN [Concomitant]
     Active Substance: MELATONIN
     Indication: Product used for unknown indication
     Dosage: UNK
     Route: 065
  25. VITAMINS [Concomitant]
     Active Substance: VITAMINS
     Indication: Product used for unknown indication
     Dosage: UNK
     Route: 065
  26. WINREVAIR [Concomitant]
     Active Substance: SOTATERCEPT-CSRK
     Indication: Product used for unknown indication
     Dosage: UNK
     Route: 065
     Dates: start: 20250822
  27. WINREVAIR [Concomitant]
     Active Substance: SOTATERCEPT-CSRK
     Dosage: UNK (MAINTENANCE DOSING)
     Route: 065
     Dates: start: 202509
  28. ADEMPAS [Concomitant]
     Active Substance: RIOCIGUAT
     Indication: Product used for unknown indication
     Dosage: UNK
     Route: 065
  29. LASIX [Concomitant]
     Active Substance: FUROSEMIDE
     Indication: Product used for unknown indication
     Dosage: UNK
     Route: 065
     Dates: end: 20250929
  30. LASIX [Concomitant]
     Active Substance: FUROSEMIDE
     Dosage: UNK
     Route: 065
     Dates: start: 20250930
  31. TREPROSTINIL [Concomitant]
     Active Substance: TREPROSTINIL
     Indication: Product used for unknown indication
     Dosage: UNK
     Route: 065

REACTIONS (27)
  - Fatigue [Recovered/Resolved]
  - Atrial fibrillation [Unknown]
  - Feeling abnormal [Recovered/Resolved]
  - Chest discomfort [Unknown]
  - Constipation [Unknown]
  - Depression [Unknown]
  - Asthenia [Recovered/Resolved]
  - Dizziness [Recovered/Resolved]
  - Oedema [Recovered/Resolved]
  - Ejection fraction decreased [Not Recovered/Not Resolved]
  - Dyspnoea exertional [Recovering/Resolving]
  - Flatulence [Recovered/Resolved]
  - Abdominal pain [Unknown]
  - Diarrhoea [Recovered/Resolved]
  - Headache [Recovering/Resolving]
  - Hypotension [Unknown]
  - Epistaxis [Recovered/Resolved]
  - Chest pain [Unknown]
  - Decreased appetite [Recovering/Resolving]
  - Non-pitting oedema [Unknown]
  - Oedema peripheral [Unknown]
  - Heart rate decreased [Unknown]
  - Extrasystoles [Unknown]
  - Abdominal distension [Unknown]
  - Fatigue [Recovering/Resolving]
  - Dizziness [Not Recovered/Not Resolved]
  - Oedema [Unknown]

NARRATIVE: CASE EVENT DATE: 20240612
